FAERS Safety Report 23665128 (Version 1)
Quarter: 2024Q1

REPORT INFORMATION
  Report Type: Spontaneous
  Country: US (occurrence: US)
  Receive Date: 20240322
  Receipt Date: 20240322
  Transmission Date: 20240410
  Serious: No
  Sender: FDA-Public Use
  Company Number: US-TEVA-VS-3138851

PATIENT

DRUGS (1)
  1. TESTOSTERONE [Suspect]
     Active Substance: TESTOSTERONE
     Indication: Product used for unknown indication
     Dosage: 1.5 PUMPS ~2.25 UNDER EACH ARM DAILY
     Route: 065

REACTIONS (3)
  - Dermal absorption impaired [Unknown]
  - Product quality issue [Unknown]
  - Incorrect dose administered by device [Unknown]
